FAERS Safety Report 9466346 (Version 1)
Quarter: 2013Q3

REPORT INFORMATION
  Report Type: Spontaneous
  Country: US (occurrence: US)
  Receive Date: 20130820
  Receipt Date: 20130820
  Transmission Date: 20140515
  Serious: No
  Sender: FDA-Public Use
  Company Number: US-PFIZER INC-2013240506

PATIENT
  Sex: Female
  Weight: 81.63 kg

DRUGS (6)
  1. GABAPENTIN [Suspect]
     Indication: ARTHRITIS
     Dosage: 800 MG, 3X/DAY
     Route: 048
     Dates: end: 201308
  2. GABAPENTIN [Suspect]
     Indication: SCIATICA
  3. LYRICA [Suspect]
     Indication: DIABETIC NEUROPATHY
     Dosage: 100 MG, 2X/DAY
     Route: 048
     Dates: start: 201308
  4. LANTUS [Concomitant]
     Indication: DIABETES MELLITUS
     Dosage: UNK
  5. KLONOPIN [Concomitant]
     Indication: NERVOUS SYSTEM DISORDER
     Dosage: UNK
  6. PERCOCET [Concomitant]
     Indication: PAIN
     Dosage: UNK

REACTIONS (5)
  - Off label use [Unknown]
  - Diabetic neuropathy [Unknown]
  - Hypersensitivity [Unknown]
  - Drug ineffective [Unknown]
  - Drug ineffective for unapproved indication [Unknown]
